FAERS Safety Report 5974115-0 (Version None)
Quarter: 2008Q4

REPORT INFORMATION
  Report Type: 
  Country: None (occurrence: None)
  Receive Date: 20081201
  Receipt Date: 20081126
  Transmission Date: 20090506
  Serious: Yes (Hospitalization, Other)
  Sender: FDA-Public Use
  Company Number: FR-PFIZER INC-2008092800

PATIENT
  Sex: Male

DRUGS (11)
  1. MARAVIROC [Suspect]
     Route: 048
     Dates: start: 20070809
  2. BACTRIM [Concomitant]
     Route: 048
     Dates: start: 20040415
  3. ABACAVIR SULFATE LAMIVUDINE AND ZIDOVUDINE [Concomitant]
     Route: 048
     Dates: start: 20070929
  4. TENOFOVIR [Concomitant]
     Route: 048
     Dates: start: 20070929
  5. RITONAVIR [Concomitant]
     Route: 048
     Dates: start: 20070929
  6. DARUNAVIR [Concomitant]
     Route: 048
     Dates: start: 20070929
  7. RALTEGRAVIR [Concomitant]
     Route: 048
     Dates: start: 20070929
  8. ATAZANAVIR SULFATE [Concomitant]
     Route: 048
     Dates: start: 20070929
  9. EFFEXOR [Concomitant]
     Route: 048
     Dates: start: 20080201
  10. LYRICA [Concomitant]
     Route: 048
     Dates: start: 20080804
  11. ALL OTHER THERAPEUTIC PRODUCTS [Concomitant]
     Route: 061
     Dates: start: 20080804

REACTIONS (2)
  - HODGKIN'S DISEASE [None]
  - WEIGHT DECREASED [None]
